FAERS Safety Report 8226946-4 (Version None)
Quarter: 2012Q1

REPORT INFORMATION
  Report Type: 
  Country: None (occurrence: None)
  Receive Date: 20120322
  Receipt Date: 20110427
  Transmission Date: 20120608
  Serious: No
  Sender: FDA-Public Use
  Company Number: US-MYLANLABS-2011S1008705

PATIENT
  Sex: Male

DRUGS (1)
  1. PROPRANOLOL HYDROCHLORIDE [Suspect]
     Indication: TREMOR
     Route: 048

REACTIONS (2)
  - TREMOR [None]
  - DRUG INEFFECTIVE FOR UNAPPROVED INDICATION [None]
